FAERS Safety Report 5739170-1 (Version None)
Quarter: 2008Q2

REPORT INFORMATION
  Report Type: 
  Country: None (occurrence: None)
  Receive Date: 20080515
  Receipt Date: 20080512
  Transmission Date: 20081010
  Serious: Yes (Hospitalization)
  Sender: FDA-Public Use
  Company Number: B0519746A

PATIENT
  Sex: Female

DRUGS (4)
  1. REQUIP [Suspect]
     Indication: PARKINSON'S DISEASE
     Dosage: 1MG THREE TIMES PER DAY
     Route: 065
  2. ENTACAPONE [Concomitant]
     Route: 065
  3. LEVODOPA [Concomitant]
     Route: 065
  4. ROTIGOTINE [Concomitant]
     Route: 050

REACTIONS (1)
  - PSYCHOTIC DISORDER [None]
